FAERS Safety Report 8792444 (Version 1)
Quarter: 2012Q4

REPORT INFORMATION
  Report Type: 
  Country: US (occurrence: US)
  Receive Date: 20120918
  Receipt Date: 20120918
  Transmission Date: 20130627
  Serious: Yes (Other)
  Sender: FDA-Public Use
  Company Number: US-ACCORD-014660

PATIENT

DRUGS (4)
  1. ETOPOSIDE [Suspect]
     Indication: NEUROBLASTOMA
     Dosage: 1-hour infusion on days 1 through 5
  2. CARBOPLATIN [Suspect]
     Indication: NEUROBLASTOMA
     Dosage: 1-hour infusion on days 1 and 2
  3. IFOSFAMIDE [Suspect]
     Indication: NEUROBLASTOMA
     Dosage: 2-hour infusion on days 1 through 5.
  4. MESNA [Concomitant]
     Indication: NEUROBLASTOMA
     Dosage: 24-hour infusion on days 1 through 5.

REACTIONS (3)
  - Respiratory disorder [Unknown]
  - Metapneumovirus infection [Unknown]
  - Off label use [Unknown]
